FAERS Safety Report 11247885 (Version 1)
Quarter: 2015Q3

REPORT INFORMATION
  Report Type: Spontaneous
  Country: IT (occurrence: IT)
  Receive Date: 20150708
  Receipt Date: 20150708
  Transmission Date: 20151125
  Serious: Yes (Hospitalization)
  Sender: FDA-Public Use
  Company Number: IT-TEVA-575970ACC

PATIENT
  Age: 25 Year
  Sex: Male

DRUGS (2)
  1. METHADONE HYDROCHLORIDE. [Concomitant]
     Active Substance: METHADONE HYDROCHLORIDE
     Indication: PRODUCT USED FOR UNKNOWN INDICATION
     Dosage: 60 MG
     Route: 048
  2. LORAZEPAM. [Suspect]
     Active Substance: LORAZEPAM
     Indication: DRUG ABUSE
     Dosage: 10 MG TOTAL
     Route: 048
     Dates: start: 20150610, end: 20150610

REACTIONS (2)
  - Drug abuse [Recovering/Resolving]
  - Hyporesponsive to stimuli [Recovering/Resolving]

NARRATIVE: CASE EVENT DATE: 20150610
